FAERS Safety Report 9931436 (Version 1)
Quarter: 2014Q1

REPORT INFORMATION
  Report Type: Report from Study
  Country: US (occurrence: US)
  Receive Date: 20140228
  Receipt Date: 20140228
  Transmission Date: 20141002
  Serious: Yes (Other)
  Sender: FDA-Public Use
  Company Number: US-ROCHE-1351391

PATIENT
  Sex: Female

DRUGS (12)
  1. AVASTIN [Suspect]
     Indication: PRESUMED OCULAR HISTOPLASMOSIS SYNDROME
     Route: 050
  2. AVASTIN [Suspect]
     Indication: CHOROIDAL NEOVASCULARISATION
  3. AVASTIN [Suspect]
     Indication: MACULAR FIBROSIS
  4. AVASTIN [Suspect]
     Indication: VITREOUS ADHESIONS
  5. AVASTIN [Suspect]
     Indication: CYSTOID MACULAR OEDEMA
  6. AVASTIN [Suspect]
     Indication: BLINDNESS
  7. DEXAMETHASONE [Concomitant]
     Route: 050
  8. TPA [Concomitant]
     Route: 050
  9. OFLOXACIN [Concomitant]
     Dosage: 0.3% OD  FOR 3 DAYS
     Route: 047
  10. TROPICAMIDE [Concomitant]
     Route: 047
  11. PHENYLEPHRINE [Concomitant]
     Route: 047
  12. PROPARACAINE [Concomitant]
     Route: 047

REACTIONS (9)
  - Blepharitis [Unknown]
  - Vitreous floaters [Unknown]
  - Photopsia [Unknown]
  - Dizziness [Unknown]
  - Headache [Unknown]
  - Retinal haemorrhage [Unknown]
  - Subretinal fibrosis [Unknown]
  - Cataract cortical [Unknown]
  - Off label use [Unknown]
